FAERS Safety Report 4762390-X (Version None)
Quarter: 2005Q3

REPORT INFORMATION
  Report Type: 
  Country: None (occurrence: None)
  Receive Date: 20050826
  Receipt Date: 20050722
  Transmission Date: 20060218
  Serious: Yes (Disabling)
  Sender: FDA-Public Use
  Company Number: 2005-00529FE

PATIENT
  Age: 40 Year
  Sex: Female

DRUGS (5)
  1. MENOPUR [Suspect]
     Indication: OVARIAN HYPERSTIMULATION SYNDROME
     Dosage: 75 IU, INTRA-MUSCULAR; 150 IU, INTRA-MUSCULAR; 150 IU, INTRAMUSCULAR
     Route: 030
     Dates: start: 20050329, end: 20050409
  2. MENOPUR [Suspect]
     Indication: OVARIAN HYPERSTIMULATION SYNDROME
     Dosage: 75 IU, INTRA-MUSCULAR; 150 IU, INTRA-MUSCULAR; 150 IU, INTRAMUSCULAR
     Route: 030
     Dates: start: 20050410, end: 20050418
  3. MENOPUR [Suspect]
     Indication: OVARIAN HYPERSTIMULATION SYNDROME
     Dosage: 75 IU, INTRA-MUSCULAR; 150 IU, INTRA-MUSCULAR; 150 IU, INTRAMUSCULAR
     Route: 030
     Dates: start: 20050428, end: 20050503
  4. . [Concomitant]
  5. . [Concomitant]

REACTIONS (1)
  - STOMATITIS NECROTISING [None]
